FAERS Safety Report 10978720 (Version 2)
Quarter: 2015Q2

REPORT INFORMATION
  Report Type: Spontaneous
  Country: JP (occurrence: JP)
  Receive Date: 20150402
  Receipt Date: 20150410
  Transmission Date: 20150821
  Serious: Yes (Hospitalization)
  Sender: FDA-Public Use
  Company Number: JP-ASTRAZENECA-2015SE29477

PATIENT
  Age: 90 Year
  Sex: Male
  Weight: 36 kg

DRUGS (6)
  1. CASODEX [Suspect]
     Active Substance: BICALUTAMIDE
     Indication: PROSTATE CANCER
     Route: 048
     Dates: start: 20150211, end: 20150318
  2. DIART [Concomitant]
     Active Substance: AZOSEMIDE
     Dosage: DOSE UNKNOWN
     Route: 065
  3. HOKUNALIN:TAPE [Concomitant]
     Active Substance: TULOBUTEROL
     Dosage: DOSE UNKNOWN
     Route: 062
     Dates: end: 20150318
  4. ZOLADEX [Suspect]
     Active Substance: GOSERELIN ACETATE
     Indication: PROSTATE CANCER
     Route: 058
     Dates: start: 20150225, end: 20150225
  5. FEBURIC [Concomitant]
     Active Substance: FEBUXOSTAT
     Dosage: DOSE UNKNOWN
     Route: 065
     Dates: end: 20150318
  6. ARICEPT [Concomitant]
     Active Substance: DONEPEZIL HYDROCHLORIDE
     Dosage: DOSE UNKNOWN
     Route: 065
     Dates: end: 20150318

REACTIONS (2)
  - Pruritus [Recovering/Resolving]
  - Hepatic function abnormal [Recovering/Resolving]

NARRATIVE: CASE EVENT DATE: 20150304
